FAERS Safety Report 10077086 (Version 5)
Quarter: 2015Q3

REPORT INFORMATION
  Report Type: Spontaneous
  Country: GB (occurrence: GB)
  Receive Date: 20140414
  Receipt Date: 20150713
  Transmission Date: 20151125
  Serious: Yes (Life-Threatening, Other)
  Sender: FDA-Public Use
  Company Number: PHFR2014GB002791

PATIENT
  Age: 53 Year
  Sex: Female
  Weight: 62 kg

DRUGS (16)
  1. TEGRETOL [Suspect]
     Active Substance: CARBAMAZEPINE
     Dosage: UNK UKN, UNK
  2. ADCAL D3 [Concomitant]
     Active Substance: CALCIUM CARBONATE\CHOLECALCIFEROL
     Indication: OSTEOPOROSIS POSTMENOPAUSAL
     Dosage: 2 DF, QD
     Route: 048
  3. ADCAL D3 [Concomitant]
     Active Substance: CALCIUM CARBONATE\CHOLECALCIFEROL
     Dosage: 1 DF, BID (ONE TABLET TWICE A DAY)
     Route: 048
     Dates: start: 20130704
  4. ADCAL D3 [Concomitant]
     Active Substance: CALCIUM CARBONATE\CHOLECALCIFEROL
     Dosage: 1 DF, BID (ONE TABLET TWICE A DAY)
     Route: 048
     Dates: start: 20131026
  5. ADCAL D3 [Concomitant]
     Active Substance: CALCIUM CARBONATE\CHOLECALCIFEROL
     Dosage: 1 DF, BID (ONE TABLET TWICE A DAY)
     Route: 048
     Dates: start: 20131231
  6. ADCAL D3 [Concomitant]
     Active Substance: CALCIUM CARBONATE\CHOLECALCIFEROL
     Dosage: 1 DF, BID (ONE TABLET TWICE A DAY)
     Route: 048
     Dates: start: 20140222
  7. TEGRETOL [Suspect]
     Active Substance: CARBAMAZEPINE
     Dosage: 3 DF, (ONE TABLET IN MORNING AND 2 AT NIGHT), DAILY
     Route: 048
     Dates: start: 20140407
  8. ADCAL D3 [Concomitant]
     Active Substance: CALCIUM CARBONATE\CHOLECALCIFEROL
     Dosage: 1 DF, BID (ONE TABLET TWICE A DAY)
     Route: 048
     Dates: start: 20130823
  9. TEGRETOL [Suspect]
     Active Substance: CARBAMAZEPINE
     Dosage: 3 DF, (ONE TABLET IN MORNING AND 2 AT NIGHT), DAILY
     Route: 048
     Dates: start: 20130704
  10. TEGRETOL [Suspect]
     Active Substance: CARBAMAZEPINE
     Dosage: 3 DF, (ONE TABLET IN MORNING AND 2 AT NIGHT), DAILY
     Route: 048
     Dates: start: 20140222
  11. TEGRETOL [Suspect]
     Active Substance: CARBAMAZEPINE
     Dosage: 3 DF, ONE TABLET IN MORNING AND 2 AT NIGHT, DAILY
     Route: 048
     Dates: start: 20140222
  12. TEGRETOL [Suspect]
     Active Substance: CARBAMAZEPINE
     Dosage: UNK UKN, UNK
  13. TEGRETOL [Suspect]
     Active Substance: CARBAMAZEPINE
     Dosage: 3 DF, (ONE TABLET IN MORNING AND 2 AT NIGHT), DAILY
     Route: 048
     Dates: start: 20130823
  14. TEGRETOL [Suspect]
     Active Substance: CARBAMAZEPINE
     Indication: TEMPORAL LOBE EPILEPSY
     Dosage: 3 DF (ONE TABLET IN MORNING AND 2 AT NIGHT), DAILY
     Route: 048
     Dates: start: 198512
  15. TEGRETOL [Suspect]
     Active Substance: CARBAMAZEPINE
     Dosage: 3 DF, (ONE TABLET IN MORNING AND 2 AT NIGHT), DAILY
     Route: 048
     Dates: start: 20131026
  16. TEGRETOL [Suspect]
     Active Substance: CARBAMAZEPINE
     Dosage: 3 DF, (ONE TABLET IN MORNING AND 2 AT NIGHT), DAILY
     Route: 048
     Dates: start: 20131231

REACTIONS (5)
  - Paraesthesia [Recovering/Resolving]
  - Vascular calcification [Unknown]
  - Simple partial seizures [Recovered/Resolved]
  - Malaise [Recovering/Resolving]
  - Dizziness [Recovering/Resolving]

NARRATIVE: CASE EVENT DATE: 20140222
